FAERS Safety Report 9109195 (Version 1)
Quarter: 2013Q1

REPORT INFORMATION
  Report Type: Spontaneous
  Country: US (occurrence: US)
  Receive Date: 20130222
  Receipt Date: 20130222
  Transmission Date: 20140127
  Serious: No
  Sender: FDA-Public Use
  Company Number: US-009507513-1302USA009905

PATIENT
  Age: 63 Year
  Sex: Male

DRUGS (9)
  1. VICTRELIS [Suspect]
     Dosage: 200 MG, TID
     Route: 048
     Dates: start: 20121203, end: 20130218
  2. PEGASYS [Suspect]
  3. RIBASPHERE [Suspect]
  4. PANTOPRAZOLE [Concomitant]
  5. AMLODIPINE [Concomitant]
  6. LACTULOSE [Concomitant]
  7. NOVOLOG [Concomitant]
  8. LEVEMIR [Concomitant]
  9. SPIRONOLACTONE [Concomitant]

REACTIONS (4)
  - Dyspnoea [Unknown]
  - Syncope [Unknown]
  - Nausea [Unknown]
  - Vomiting [Unknown]
